FAERS Safety Report 8354366-0 (Version None)
Quarter: 2012Q2

REPORT INFORMATION
  Report Type: 
  Country: None (occurrence: None)
  Receive Date: 20120511
  Receipt Date: 20120503
  Transmission Date: 20120825
  Serious: Yes (Hospitalization)
  Sender: FDA-Public Use
  Company Number: US-AMGEN-USASP2012028383

PATIENT
  Age: 78 Year
  Sex: Female

DRUGS (1)
  1. ENBREL [Suspect]
     Indication: RHEUMATOID ARTHRITIS
     Dosage: 50 MG, QWK
     Dates: start: 20110615

REACTIONS (10)
  - NAUSEA [None]
  - MUSCULOSKELETAL STIFFNESS [None]
  - BLOOD SODIUM DECREASED [None]
  - WEIGHT DECREASED [None]
  - SKIN BURNING SENSATION [None]
  - CONSTIPATION [None]
  - INSOMNIA [None]
  - DYSURIA [None]
  - VOMITING [None]
  - EYE IRRITATION [None]
